FAERS Safety Report 5345430-9 (Version None)
Quarter: 2007Q2

REPORT INFORMATION
  Report Type: 
  Country: None (occurrence: None)
  Receive Date: 20070426
  Receipt Date: 20070111
  Transmission Date: 20071010
  Serious: Yes (Hospitalization)
  Sender: FDA-Public Use
  Company Number: 2007-BP-00514BP

PATIENT
  Age: 47 Year
  Sex: Male

DRUGS (1)
  1. APTIVUS/ RITONAVIR CAPSULES (TIPRANAVIR W /RITONAVIR) [Suspect]
     Dosage: SEE TEXT, TPV/RTV 250 MG/100MG)

REACTIONS (1)
  - RENAL FAILURE [None]
